FAERS Safety Report 4623159-X (Version None)
Quarter: 2005Q1

REPORT INFORMATION
  Report Type: 
  Country: None (occurrence: None)
  Receive Date: 20050329
  Receipt Date: 20050314
  Transmission Date: 20050727
  Serious: Yes (Hospitalization)
  Sender: FDA-Public Use
  Company Number: 10597

PATIENT
  Sex: Male

DRUGS (6)
  1. CARBOPLATIN [Suspect]
     Indication: NON-SMALL CELL LUNG CANCER
  2. GEMCTABINE [Concomitant]
  3. VINORELBINE TARTRATE [Concomitant]
  4. FELODIPINE [Concomitant]
  5. ACETYL SALICYLIC ACID USP BAT [Concomitant]
  6. SIMVASTATIN [Concomitant]

REACTIONS (1)
  - HYPONATRAEMIA [None]
